FAERS Safety Report 6423049-6 (Version None)
Quarter: 2009Q4

REPORT INFORMATION
  Report Type: 
  Country: None (occurrence: None)
  Receive Date: 20091102
  Receipt Date: 20091020
  Transmission Date: 20100525
  Serious: Yes (Other)
  Sender: FDA-Public Use
  Company Number: PHEH2009US06736

PATIENT
  Sex: Female
  Weight: 61.678 kg

DRUGS (9)
  1. RECLAST [Suspect]
     Indication: OSTEOPOROSIS
     Dosage: 5 MG ONCE YEARLY
     Dates: start: 20090515, end: 20090515
  2. ZOMETA [Suspect]
     Indication: OSTEOPOROSIS
     Dosage: 4 MG TWICE YEARLY
     Route: 042
     Dates: start: 20080401
  3. TYLENOL [Concomitant]
     Dosage: 650 MG, UNK
  4. LEFLUNOMIDE [Concomitant]
     Indication: RHEUMATOID ARTHRITIS
     Dosage: 20 MG, QD
  5. COREG [Concomitant]
     Indication: HYPERTENSION
     Dosage: 18.75 MG
     Route: 048
  6. SPIRONOLACTONE [Concomitant]
     Indication: HYPERTENSION
     Dosage: 12.5 MG, QD
  7. LISINOPRIL [Concomitant]
     Indication: HYPERTENSION
     Dosage: 10 MG, QD
  8. NEXIUM [Concomitant]
     Indication: GASTROOESOPHAGEAL REFLUX DISEASE
     Dosage: 40 MG, QD
  9. ARIMIDEX [Concomitant]
     Indication: BREAST CANCER
     Dosage: 1 MG, QD
     Dates: start: 20030101

REACTIONS (6)
  - ARTHRALGIA [None]
  - BONE DISORDER [None]
  - ERYTHEMA [None]
  - OEDEMA [None]
  - OSTEONECROSIS [None]
  - PAIN IN JAW [None]
